FAERS Safety Report 20017232 (Version 1)
Quarter: 2021Q4

REPORT INFORMATION
  Report Type: Report from Study
  Country: BE (occurrence: BE)
  Receive Date: 20211030
  Receipt Date: 20211030
  Transmission Date: 20220303
  Serious: Yes (Other)
  Sender: FDA-Public Use
  Company Number: BE-NOVARTISPH-NVSC2021BE246503

PATIENT
  Sex: Female

DRUGS (1)
  1. COSENTYX [Suspect]
     Active Substance: SECUKINUMAB
     Indication: Psoriasis
     Dosage: 150 MG
     Route: 058
     Dates: start: 20180427

REACTIONS (4)
  - White blood cell count increased [Unknown]
  - Infection [Unknown]
  - Psoriasis [Unknown]
  - Drug ineffective [Unknown]
